FAERS Safety Report 23957939 (Version 3)
Quarter: 2024Q3

REPORT INFORMATION
  Report Type: Report from Study
  Country: US (occurrence: US)
  Receive Date: 20240610
  Receipt Date: 20240731
  Transmission Date: 20241017
  Serious: Yes (Congenital Anomaly, Other)
  Sender: TEVA
  Company Number: US-TEVA-VS-3196526

PATIENT
  Age: 34 Week
  Sex: Male
  Weight: 2.02 kg

DRUGS (4)
  1. TENOFOVIR DISOPROXIL FUMARATE [Suspect]
     Active Substance: TENOFOVIR DISOPROXIL FUMARATE
     Indication: Product used for unknown indication
     Route: 064
     Dates: start: 20220901
  2. RITONAVIR [Suspect]
     Active Substance: RITONAVIR
     Indication: Product used for unknown indication
     Route: 064
     Dates: start: 20170314
  3. DARUNAVIR [Suspect]
     Active Substance: DARUNAVIR
     Indication: Product used for unknown indication
     Route: 064
     Dates: start: 20210716
  4. DOLUTEGRAVIR [Suspect]
     Active Substance: DOLUTEGRAVIR
     Indication: Product used for unknown indication
     Route: 064
     Dates: start: 20220901

REACTIONS (4)
  - Scrotal cyst [Unknown]
  - Peritoneal cyst [Unknown]
  - Foetal exposure during pregnancy [Unknown]
  - Premature baby [Unknown]
